FAERS Safety Report 22383307 (Version 1)
Quarter: 2023Q2

REPORT INFORMATION
  Report Type: Spontaneous
  Country: US (occurrence: US)
  Receive Date: 20230530
  Receipt Date: 20230530
  Transmission Date: 20230721
  Serious: Yes (Congenital Anomaly, Other)
  Sender: FDA-Public Use
  Company Number: US-TEVA-2023-US-2891048

PATIENT
  Age: 55 Year
  Sex: Female
  Weight: 72.57 kg

DRUGS (3)
  1. MODAFINIL [Suspect]
     Active Substance: MODAFINIL
     Indication: Sleep apnoea syndrome
     Route: 065
     Dates: start: 2012
  2. MODAFINIL [Suspect]
     Active Substance: MODAFINIL
     Indication: Fatigue
     Dosage: 100 MILLIGRAM DAILY;
     Route: 065
  3. VITAMINS [Concomitant]
     Active Substance: VITAMINS
     Indication: Product used for unknown indication
     Route: 065
     Dates: start: 2012

REACTIONS (7)
  - Genetic polymorphism [Unknown]
  - Multiple sclerosis [Unknown]
  - Osteopenia [Unknown]
  - Osteoporosis [Not Recovered/Not Resolved]
  - Metabolic disorder [Unknown]
  - Wrong technique in product usage process [Not Recovered/Not Resolved]
  - Product use in unapproved indication [Not Recovered/Not Resolved]

NARRATIVE: CASE EVENT DATE: 20120101
